FAERS Safety Report 15515972 (Version 2)
Quarter: 2019Q1

REPORT INFORMATION
  Report Type: Spontaneous
  Country: US (occurrence: US)
  Receive Date: 20181017
  Receipt Date: 20190312
  Transmission Date: 20190417
  Serious: No
  Sender: FDA-Public Use
  Company Number: US-PFIZER INC-2018408447

PATIENT
  Age: 68 Year
  Sex: Female

DRUGS (4)
  1. TRAMADOL. [Suspect]
     Active Substance: TRAMADOL
     Dosage: UNK
  2. HUMIRA [Suspect]
     Active Substance: ADALIMUMAB
     Dosage: UNK
  3. TETRACYCLINE HCL [Suspect]
     Active Substance: TETRACYCLINE HYDROCHLORIDE
     Dosage: UNK
  4. FELDENE [Suspect]
     Active Substance: PIROXICAM
     Dosage: UNK

REACTIONS (1)
  - Drug hypersensitivity [Unknown]
